FAERS Safety Report 10691775 (Version 1)
Quarter: 2015Q1

REPORT INFORMATION
  Report Type: Spontaneous
  Country: US (occurrence: US)
  Receive Date: 20150105
  Receipt Date: 20150105
  Transmission Date: 20150720
  Serious: No
  Sender: FDA-Public Use
  Company Number: US-GLAXOSMITHKLINE-A1052675A

PATIENT

DRUGS (4)
  1. LOVAZA [Suspect]
     Active Substance: OMEGA-3-ACID ETHYL ESTERS
     Indication: BLOOD TRIGLYCERIDES INCREASED
     Dosage: 4 CAPSULES DAILY
     Route: 048
     Dates: start: 2012
  2. CRESTOR [Suspect]
     Active Substance: ROSUVASTATIN CALCIUM
     Indication: BLOOD CHOLESTEROL INCREASED
     Dosage: 20 MG DAILY
     Route: 048
     Dates: start: 2012, end: 2013
  3. LIPITOR [Suspect]
     Active Substance: ATORVASTATIN CALCIUM
     Indication: BLOOD CHOLESTEROL INCREASED
     Dosage: 40 MG DAILY
     Route: 048
     Dates: start: 2013
  4. NO CONCURRENT MEDICATION [Concomitant]
     Active Substance: UNSPECIFIED INGREDIENT

REACTIONS (3)
  - Hypoaesthesia [None]
  - Hypoaesthesia [Recovering/Resolving]
  - Hypoaesthesia oral [None]

NARRATIVE: CASE EVENT DATE: 2013
